FAERS Safety Report 6450183-7 (Version None)
Quarter: 2009Q4

REPORT INFORMATION
  Report Type: 
  Country: None (occurrence: None)
  Receive Date: 20091123
  Receipt Date: 20091117
  Transmission Date: 20100525
  Serious: Yes (Life-Threatening, Hospitalization)
  Sender: FDA-Public Use
  Company Number: DE-ROCHE-603283

PATIENT
  Sex: Male

DRUGS (10)
  1. PEG-INTERFERON ALFA 2A (RO 25-8310) [Suspect]
     Dosage: VARIABLE DOSES WEEKLY.
     Route: 058
     Dates: start: 20080815, end: 20081008
  2. PEG-INTERFERON ALFA 2A (RO 25-8310) [Suspect]
     Route: 058
     Dates: start: 20081015
  3. RIBAVIRIN [Suspect]
     Route: 048
     Dates: start: 20080815, end: 20080912
  4. RIBAVIRIN [Suspect]
     Route: 048
     Dates: start: 20080913, end: 20081203
  5. RIBAVIRIN [Suspect]
     Dosage: VARIABLE DOSES
     Route: 048
     Dates: start: 20081210, end: 20090511
  6. RIBAVIRIN [Suspect]
     Route: 048
     Dates: start: 20090512
  7. ELTROMBOPAG [Suspect]
     Indication: THROMBOCYTOPENIA
     Route: 048
     Dates: start: 20080718, end: 20080801
  8. ELTROMBOPAG [Suspect]
     Route: 048
     Dates: start: 20080802, end: 20080815
  9. BLINDED ELTROMBOPAG [Suspect]
     Indication: THROMBOCYTOPENIA
     Dosage: DOSE BLINDED.
     Route: 048
     Dates: start: 20080816, end: 20080828
  10. BLINDED ELTROMBOPAG [Suspect]
     Dosage: DOSE BLINDED.
     Route: 048
     Dates: start: 20080829

REACTIONS (3)
  - ERYSIPELAS [None]
  - OEDEMA PERIPHERAL [None]
  - THROMBOCYTOPENIA [None]
